FAERS Safety Report 6817644-X (Version None)
Quarter: 2010Q3

REPORT INFORMATION
  Report Type: 
  Country: None (occurrence: None)
  Receive Date: 20100706
  Receipt Date: 20100628
  Transmission Date: 20110219
  Serious: Yes (Other)
  Sender: FDA-Public Use
  Company Number: FR-PFIZER INC-2010080681

PATIENT
  Age: 60 Year
  Sex: Female

DRUGS (3)
  1. AROMASIN [Suspect]
     Indication: BREAST CANCER
     Dosage: 1 DF (1 TABLET), 1X/DAY
     Route: 048
     Dates: start: 20100301
  2. NEXIUM [Concomitant]
     Indication: GASTRITIS
     Dosage: UNK
  3. LEXOMIL [Concomitant]
     Dosage: UNK

REACTIONS (7)
  - ALOPECIA [None]
  - ASTHENOPIA [None]
  - CONJUNCTIVITIS [None]
  - EYE IRRITATION [None]
  - LACRIMATION INCREASED [None]
  - OCULAR HYPERAEMIA [None]
  - VISION BLURRED [None]
